FAERS Safety Report 5515402-X (Version None)
Quarter: 2007Q4

REPORT INFORMATION
  Report Type: 
  Country: None (occurrence: None)
  Receive Date: 20071113
  Receipt Date: 20070207
  Transmission Date: 20080405
  Serious: No
  Sender: FDA-Public Use
  Company Number: A0638812A

PATIENT
  Age: 80 Year
  Sex: Male

DRUGS (2)
  1. COREG [Suspect]
     Indication: CARDIAC FAILURE
     Route: 065
  2. COUMADIN [Concomitant]

REACTIONS (1)
  - RASH [None]
